FAERS Safety Report 5787806-1 (Version None)
Quarter: 2008Q2

REPORT INFORMATION
  Report Type: 
  Country: None (occurrence: None)
  Receive Date: 20080625
  Receipt Date: 20080616
  Transmission Date: 20081010
  Serious: Yes (Hospitalization)
  Sender: FDA-Public Use
  Company Number: PHHY2008FR11236

PATIENT
  Sex: Female

DRUGS (3)
  1. TAREG [Suspect]
     Dosage: 40 MG, QD
     Dates: start: 20080325, end: 20080520
  2. VASTAREL [Suspect]
     Dosage: UNK
     Dates: start: 20080325, end: 20080520
  3. BETASERC [Suspect]
     Dosage: UNK
     Dates: start: 20080408, end: 20080520

REACTIONS (6)
  - BIOPSY SKIN ABNORMAL [None]
  - EOSINOPHILIA [None]
  - OEDEMA PERIPHERAL [None]
  - PRURITUS [None]
  - RASH [None]
  - RASH MACULAR [None]
